FAERS Safety Report 13673387 (Version 2)
Quarter: 2017Q3

REPORT INFORMATION
  Report Type: Spontaneous
  Country: US (occurrence: US)
  Receive Date: 20170621
  Receipt Date: 20170818
  Transmission Date: 20171127
  Serious: Yes (Other)
  Sender: FDA-Public Use
  Company Number: US-SAOL THERAPEUTICS-2017SAO01027

PATIENT
  Age: 48 Year
  Sex: Female

DRUGS (6)
  1. BUPIVACAINE. [Suspect]
     Active Substance: BUPIVACAINE
     Indication: PAIN
     Dosage: 1.5742 MG, \DAY
     Route: 037
     Dates: start: 20170509
  2. DILAUDID [Suspect]
     Active Substance: HYDROMORPHONE HYDROCHLORIDE
     Indication: CANCER PAIN
     Dosage: 8.257 MG, \DAY-MAX
     Route: 037
     Dates: start: 20170509
  3. BUPIVACAINE. [Suspect]
     Active Substance: BUPIVACAINE
     Indication: CANCER PAIN
     Dosage: 2.2018 MG, \DAY-MAX
     Route: 037
     Dates: start: 20170509
  4. DILAUDID [Suspect]
     Active Substance: HYDROMORPHONE HYDROCHLORIDE
     Indication: PAIN
     Dosage: 5.903 MG, \DAY
     Route: 037
     Dates: start: 20170509
  5. BACLOFEN. [Suspect]
     Active Substance: BACLOFEN
     Indication: PAIN
     Dosage: 236.13 ?G, \DAY
     Route: 037
     Dates: start: 20170509
  6. BACLOFEN. [Suspect]
     Active Substance: BACLOFEN
     Indication: CANCER PAIN
     Dosage: 330.27 ?G, \DAY-MAX
     Route: 037
     Dates: start: 20170509

REACTIONS (6)
  - Device failure [Recovered/Resolved]
  - Drug withdrawal syndrome [Recovered/Resolved]
  - Feeling abnormal [Recovered/Resolved]
  - Anxiety [Recovered/Resolved]
  - Fall [Unknown]
  - Off label use [Unknown]

NARRATIVE: CASE EVENT DATE: 20170530
